FAERS Safety Report 8610722-4 (Version None)
Quarter: 2012Q3

REPORT INFORMATION
  Report Type: 
  Country: None (occurrence: None)
  Receive Date: 20120808
  Receipt Date: 20120725
  Transmission Date: 20120928
  Serious: Yes (Hospitalization)
  Sender: FDA-Public Use
  Company Number: IMP_05949_2012

PATIENT
  Age: 23 Year
  Sex: Male

DRUGS (1)
  1. BUPROPION HCL [Suspect]
     Indication: PRODUCT USED FOR UNKNOWN INDICATION
     Dosage: (5700 MG 1X, NOT THE RECOMENDED DOSE ORAL)

REACTIONS (10)
  - ATAXIA [None]
  - OVERDOSE [None]
  - HALLUCINATIONS, MIXED [None]
  - PAST-POINTING [None]
  - BRUXISM [None]
  - GRAND MAL CONVULSION [None]
  - DYSARTHRIA [None]
  - INTENTION TREMOR [None]
  - BLOOD GLUCOSE DECREASED [None]
  - CEREBELLAR SYNDROME [None]
